FAERS Safety Report 4798081-9 (Version None)
Quarter: 2005Q4

REPORT INFORMATION
  Report Type: 
  Country: None (occurrence: None)
  Receive Date: 20051011
  Receipt Date: 20051011
  Transmission Date: 20060501
  Serious: No
  Sender: FDA-Public Use
  Company Number: None

PATIENT
  Age: 57 Year
  Sex: Male
  Weight: 81.6475 kg

DRUGS (1)
  1. SOTALOL 80MG EON [Suspect]
     Indication: ARRHYTHMIA
     Dosage: 1BID

REACTIONS (2)
  - FATIGUE [None]
  - HEART RATE INCREASED [None]
